FAERS Safety Report 21799859 (Version 1)
Quarter: 2022Q4

REPORT INFORMATION
  Report Type: Spontaneous
  Country: US (occurrence: US)
  Receive Date: 20221230
  Receipt Date: 20221230
  Transmission Date: 20230113
  Serious: Yes (Hospitalization, Other)
  Sender: FDA-Public Use
  Company Number: US-drreddys-SPO/USA/22/0159061

PATIENT
  Age: 70 Year
  Sex: Male

DRUGS (14)
  1. LENALIDOMIDE [Suspect]
     Active Substance: LENALIDOMIDE
     Indication: Immunodeficiency common variable
     Route: 048
     Dates: start: 20221026
  2. ALLOPURINOL [Concomitant]
     Active Substance: ALLOPURINOL
     Indication: Product used for unknown indication
  3. ATORVASTATIN [Concomitant]
     Active Substance: ATORVASTATIN
     Indication: Product used for unknown indication
  4. CARVEDILOL [Concomitant]
     Active Substance: CARVEDILOL
     Indication: Product used for unknown indication
  5. LATANOPROST [Concomitant]
     Active Substance: LATANOPROST
     Indication: Product used for unknown indication
     Dosage: SOL
  6. B COMPLEX CAP [Concomitant]
     Indication: Product used for unknown indication
  7. BUMETANIDE TAB 2MG [Concomitant]
     Indication: Product used for unknown indication
  8. FOLIC ACID TAB 800MCG [Concomitant]
     Indication: Product used for unknown indication
  9. LIPOIC ACID CAP 150MG [Concomitant]
     Indication: Product used for unknown indication
  10. LOSARTAN POT TAB 100MG [Concomitant]
     Indication: Product used for unknown indication
  11. POTASSIUM CH PAC 20MEQ [Concomitant]
     Indication: Product used for unknown indication
  12. SPIRONOLACTO TAB 100MG [Concomitant]
     Indication: Product used for unknown indication
  13. VITAMIN 3 TAB 25MCG [Concomitant]
     Indication: Product used for unknown indication
  14. MESALAMINE [Concomitant]
     Active Substance: MESALAMINE
     Indication: Product used for unknown indication

REACTIONS (3)
  - Hospitalisation [Unknown]
  - Pulmonary embolism [Recovered/Resolved]
  - Product use in unapproved indication [Unknown]

NARRATIVE: CASE EVENT DATE: 20221026
